FAERS Safety Report 9924952 (Version 1)
Quarter: 2014Q1

REPORT INFORMATION
  Report Type: Spontaneous
  Country: FR (occurrence: None)
  Receive Date: 20140221
  Receipt Date: 20140221
  Transmission Date: 20141002
  Serious: Yes (Life-Threatening, Hospitalization)
  Sender: FDA-Public Use
  Company Number: FR-014726

PATIENT
  Age: 83 Year
  Sex: Male

DRUGS (2)
  1. FIRMAGON [Suspect]
     Indication: PROSTATE CANCER
     Route: 058
     Dates: start: 20131211, end: 20131211
  2. MOPRAL /00661201/ ( TO UNKNOWN) [Concomitant]

REACTIONS (3)
  - Cerebrovascular accident [None]
  - Atrial fibrillation [None]
  - Acute respiratory failure [None]
